FAERS Safety Report 24970759 (Version 1)
Quarter: 2025Q1

REPORT INFORMATION
  Report Type: Spontaneous
  Country: US (occurrence: US)
  Receive Date: 20250214
  Receipt Date: 20250214
  Transmission Date: 20250408
  Serious: No
  Sender: THEA PHARMA INC.
  Company Number: US-THEA-2024002704

PATIENT
  Sex: Male

DRUGS (1)
  1. COSOPT PF [Suspect]
     Active Substance: DORZOLAMIDE HYDROCHLORIDE\TIMOLOL MALEATE
     Indication: Glaucoma
     Dosage: IN LEFT EYE FROM SINGLE DOSE CONTAINER EACH MORNING AND EACH EVENING
     Route: 047
     Dates: start: 20241107

REACTIONS (3)
  - Eye injury [Unknown]
  - Wrong technique in product usage process [Unknown]
  - Product complaint [Unknown]

NARRATIVE: CASE EVENT DATE: 20241101
